FAERS Safety Report 4530275-X (Version None)
Quarter: 2004Q4

REPORT INFORMATION
  Report Type: 
  Country: None (occurrence: None)
  Receive Date: 20041217
  Receipt Date: 20020703
  Transmission Date: 20050328
  Serious: Yes (Hospitalization, Disabling, Other)
  Sender: FDA-Public Use
  Company Number: US-MERCK-0207USA00488

PATIENT
  Age: 40 Year
  Sex: Female
  Weight: 68 kg

DRUGS (28)
  1. VIOXX [Suspect]
     Indication: BACK PAIN
     Route: 048
     Dates: start: 20001101, end: 20010707
  2. VIOXX [Suspect]
     Indication: ARTHRITIS
     Route: 048
     Dates: start: 20001101, end: 20010707
  3. SKELAXIN [Concomitant]
     Indication: BACK INJURY
     Route: 065
  4. VICODIN [Concomitant]
     Indication: BACK INJURY
     Route: 065
  5. EFFEXOR XR [Concomitant]
     Indication: DEPRESSION
     Route: 065
  6. UNIVASC [Concomitant]
     Indication: HYPERTENSION
     Route: 065
     Dates: start: 20010611, end: 20010701
  7. BENADRYL [Concomitant]
     Indication: INSOMNIA
     Route: 065
  8. WELLBUTRIN [Concomitant]
     Route: 065
  9. CELEXA [Concomitant]
     Route: 065
     Dates: end: 20011101
  10. IBUPROFEN [Concomitant]
     Route: 065
  11. TEMAZEPAM [Concomitant]
     Indication: ANXIETY
     Route: 065
  12. AMBIEN [Concomitant]
     Route: 065
  13. TRAZODONE HYDROCHLORIDE [Concomitant]
     Route: 065
  14. NAPROXEN [Concomitant]
     Route: 065
  15. TYLENOL (CAPLET) [Concomitant]
     Route: 065
  16. TENORMIN [Concomitant]
     Route: 065
     Dates: start: 20010604
  17. ATIVAN [Concomitant]
     Route: 065
     Dates: end: 20010701
  18. RANITIDINE [Concomitant]
     Indication: GASTROOESOPHAGEAL REFLUX DISEASE
     Route: 065
     Dates: end: 20010701
  19. PREMARIN [Concomitant]
     Route: 065
  20. MECLIZINE [Concomitant]
     Route: 065
  21. ASPIRIN [Concomitant]
     Route: 065
  22. PLAVIX [Concomitant]
     Route: 065
  23. NEURONTIN [Concomitant]
     Route: 065
  24. ZITHROMAX [Concomitant]
     Route: 065
  25. CLARITIN [Concomitant]
     Route: 065
  26. AMOXICILLIN [Concomitant]
     Route: 065
  27. GLUCOSAMINE [Concomitant]
     Route: 065
  28. HYPERICIN [Concomitant]
     Route: 065

REACTIONS (17)
  - ACNE [None]
  - ADVERSE EVENT [None]
  - ALOPECIA [None]
  - BLOOD TESTOSTERONE DECREASED [None]
  - CEREBROVASCULAR ACCIDENT [None]
  - CHRONIC FATIGUE SYNDROME [None]
  - ENCEPHALITIS VIRAL [None]
  - HYPERTENSION [None]
  - HYPONATRAEMIA [None]
  - JOINT SPRAIN [None]
  - MENTAL DISORDER [None]
  - MIGRAINE [None]
  - OTITIS MEDIA [None]
  - TEMPOROMANDIBULAR JOINT SYNDROME [None]
  - TRANSIENT ISCHAEMIC ATTACK [None]
  - TRI-IODOTHYRONINE FREE INCREASED [None]
  - VERTIGO [None]
